FAERS Safety Report 25076882 (Version 1)
Quarter: 2025Q1

REPORT INFORMATION
  Report Type: Spontaneous
  Country: JO (occurrence: JO)
  Receive Date: 20250314
  Receipt Date: 20250314
  Transmission Date: 20250409
  Serious: Yes (Other)
  Sender: AMGEN
  Company Number: JO-AMGEN-JORSP2025046712

PATIENT

DRUGS (10)
  1. ADALIMUMAB [Suspect]
     Active Substance: ADALIMUMAB
     Indication: Rheumatic disorder
     Route: 058
  2. ADALIMUMAB [Suspect]
     Active Substance: ADALIMUMAB
     Indication: Juvenile idiopathic arthritis
  3. ADALIMUMAB [Suspect]
     Active Substance: ADALIMUMAB
     Indication: Juvenile idiopathic arthritis
  4. ADALIMUMAB [Suspect]
     Active Substance: ADALIMUMAB
     Indication: Still^s disease
  5. ADALIMUMAB [Suspect]
     Active Substance: ADALIMUMAB
     Indication: Juvenile idiopathic arthritis
  6. ADALIMUMAB [Suspect]
     Active Substance: ADALIMUMAB
     Indication: Inflammatory bowel disease
  7. ADALIMUMAB [Suspect]
     Active Substance: ADALIMUMAB
     Indication: Autoinflammatory disease
  8. ADALIMUMAB [Suspect]
     Active Substance: ADALIMUMAB
     Indication: Mevalonate kinase deficiency
  9. ADALIMUMAB [Suspect]
     Active Substance: ADALIMUMAB
     Indication: Vasculitis
  10. ADALIMUMAB [Suspect]
     Active Substance: ADALIMUMAB
     Indication: Uveitis

REACTIONS (8)
  - Leukopenia [Unknown]
  - Injection site erythema [Unknown]
  - Injection site pain [Unknown]
  - Infection [Unknown]
  - Upper respiratory tract infection [Unknown]
  - Hypertransaminasaemia [Unknown]
  - Adverse event [Unknown]
  - Drug ineffective [Unknown]
